FAERS Safety Report 9418228 (Version 3)
Quarter: 2013Q3

REPORT INFORMATION
  Report Type: Spontaneous
  Country: US (occurrence: US)
  Receive Date: 20130724
  Receipt Date: 20130819
  Transmission Date: 20140515
  Serious: Yes (Hospitalization)
  Sender: FDA-Public Use
  Company Number: US-B.I. PHARMACEUTICALS,INC./RIDGEFIELD-2013-BI-21054BP

PATIENT
  Sex: Male
  Weight: 73 kg

DRUGS (2)
  1. COMBIVENT [Suspect]
     Indication: CHRONIC OBSTRUCTIVE PULMONARY DISEASE
     Dosage: STRENGTH: 18 MCG/103 MCG; DAILY DOSE: 1-2 PUFFS A DAY
     Route: 055
     Dates: start: 2003, end: 2009
  2. COMBIVENT [Suspect]
     Dosage: STRENGTH: 18 MCG/103 MCG; DAILY DOSE: 3 PUFFS 4 TIMES A DAY
     Route: 055
     Dates: start: 2009, end: 201307

REACTIONS (4)
  - Neck injury [Not Recovered/Not Resolved]
  - Neuropathy peripheral [Not Recovered/Not Resolved]
  - Neuropathy peripheral [Not Recovered/Not Resolved]
  - Balance disorder [Not Recovered/Not Resolved]
